FAERS Safety Report 8554181-9 (Version None)
Quarter: 2012Q3

REPORT INFORMATION
  Report Type: 
  Country: None (occurrence: None)
  Receive Date: 20120731
  Receipt Date: 20120727
  Transmission Date: 20120928
  Serious: Yes (Hospitalization)
  Sender: FDA-Public Use
  Company Number: US-B.I. PHARMACEUTICALS,INC./RIDGEFIELD-2012-BP-17021BP

PATIENT
  Sex: Female
  Weight: 44 kg

DRUGS (11)
  1. GABAPENTIN [Concomitant]
     Indication: BACK PAIN
     Dosage: 3600 MG
     Route: 048
     Dates: start: 19960101
  2. CLONIDINE [Concomitant]
     Indication: BLOOD PRESSURE
     Dosage: 0.3 MG
     Route: 061
     Dates: start: 20120723
  3. CYMBALTA [Concomitant]
     Indication: DEPRESSION
     Dosage: 60 MG
     Route: 048
     Dates: start: 19960101
  4. ASMANEX TWISTHALER [Concomitant]
     Indication: EMPHYSEMA
     Dosage: 220 MCG
     Route: 055
  5. LISINOPRIL [Concomitant]
     Indication: BLOOD PRESSURE
     Dosage: 40 MG
     Route: 048
     Dates: start: 20120723
  6. LYRICA [Concomitant]
     Indication: BACK PAIN
     Dosage: 150 MG
     Route: 048
     Dates: start: 20110101
  7. OMEPRAZOLE [Concomitant]
     Indication: GASTROOESOPHAGEAL REFLUX DISEASE
     Dosage: 20 MG
     Route: 048
     Dates: start: 20000101
  8. SINGULAIR [Concomitant]
     Indication: MULTIPLE ALLERGIES
     Dosage: 10 MG
     Route: 048
     Dates: start: 19980101
  9. SPIRIVA [Suspect]
     Indication: EMPHYSEMA
     Dosage: 18 MCG
     Route: 055
     Dates: start: 20060101
  10. FENTANYL [Concomitant]
     Indication: BACK PAIN
     Dosage: 100 MCG
     Route: 061
     Dates: start: 20000101
  11. MELOXICAM [Concomitant]
     Indication: BACK PAIN
     Dosage: 15 MG
     Route: 048
     Dates: start: 20070101

REACTIONS (6)
  - AMNESIA [None]
  - HYPERTENSION [None]
  - CARDIAC ARREST [None]
  - MEMORY IMPAIRMENT [None]
  - FALL [None]
  - RESPIRATORY ARREST [None]
